FAERS Safety Report 18104346 (Version 1)
Quarter: 2020Q3

REPORT INFORMATION
  Report Type: Spontaneous
  Country: DE (occurrence: DE)
  Receive Date: 20200803
  Receipt Date: 20200803
  Transmission Date: 20201103
  Serious: Yes (Hospitalization)
  Sender: FDA-Public Use
  Company Number: DE-JNJFOC-20200740941

PATIENT
  Age: 72 Year
  Sex: Female
  Weight: 95 kg

DRUGS (3)
  1. RIVAROXABAN [Suspect]
     Active Substance: RIVAROXABAN
     Indication: PULMONARY EMBOLISM
     Dosage: 20 MG, QD
     Route: 048
     Dates: start: 20171101
  2. RIOCIGUAT. [Suspect]
     Active Substance: RIOCIGUAT
     Indication: PULMONARY EMBOLISM
     Dosage: 20 MG, QD
     Route: 065
     Dates: start: 20171101
  3. NIFEDIPIN [Concomitant]
     Active Substance: NIFEDIPINE
     Indication: HYPERTENSION
     Dosage: ON DEMAND, MAX. TWICE A DAY

REACTIONS (1)
  - Infected dermal cyst [Recovered/Resolved]

NARRATIVE: CASE EVENT DATE: 20200722
